FAERS Safety Report 10143479 (Version 1)
Quarter: 2014Q2

REPORT INFORMATION
  Report Type: Spontaneous
  Country: US (occurrence: None)
  Receive Date: 20140429
  Receipt Date: 20140429
  Transmission Date: 20141212
  Serious: Yes (Hospitalization)
  Sender: FDA-Public Use
  Company Number: None

PATIENT
  Age: 81 Year
  Sex: Male
  Weight: 120.5 kg

DRUGS (1)
  1. SUNITINIB [Suspect]
     Indication: GASTROINTESTINAL STROMAL TUMOUR
     Route: 048
     Dates: start: 20131101

REACTIONS (5)
  - Oropharyngeal pain [None]
  - Asthenia [None]
  - Oedema peripheral [None]
  - Dehydration [None]
  - Fatigue [None]
